FAERS Safety Report 6037416-6 (Version None)
Quarter: 2009Q1

REPORT INFORMATION
  Report Type: 
  Country: None (occurrence: None)
  Receive Date: 20090114
  Receipt Date: 20090102
  Transmission Date: 20090719
  Serious: Yes (Hospitalization)
  Sender: FDA-Public Use
  Company Number: US-PFIZER INC-2007094015

PATIENT
  Sex: Male
  Weight: 77.57 kg

DRUGS (6)
  1. SUNITINIB MALATE [Suspect]
     Indication: NON-SMALL CELL LUNG CANCER
     Dosage: 37.5MG, DAILY
     Route: 048
     Dates: start: 20070716, end: 20070824
  2. ADVAIR DISKUS 100/50 [Concomitant]
     Route: 055
     Dates: start: 20070901
  3. DECADRON [Concomitant]
     Route: 048
     Dates: start: 20070901
  4. KEPPRA [Concomitant]
     Route: 048
     Dates: start: 20070901
  5. PEPCID [Concomitant]
     Route: 048
  6. TYLENOL (CAPLET) [Concomitant]
     Route: 048

REACTIONS (2)
  - LETHARGY [None]
  - SPEECH DISORDER [None]
